FAERS Safety Report 5323549-6 (Version None)
Quarter: 2007Q2

REPORT INFORMATION
  Report Type: 
  Country: None (occurrence: None)
  Receive Date: 20070514
  Receipt Date: 20070511
  Transmission Date: 20071010
  Serious: Yes (Hospitalization, Other)
  Sender: FDA-Public Use
  Company Number: PT-BRISTOL-MYERS SQUIBB COMPANY-13633037

PATIENT
  Age: 68 Year
  Sex: Male

DRUGS (5)
  1. ABATACEPT [Suspect]
     Indication: RHEUMATOID ARTHRITIS
     Route: 042
     Dates: start: 20040512
  2. METHOTREXATE [Suspect]
     Indication: RHEUMATOID ARTHRITIS
     Route: 048
     Dates: start: 20021003
  3. PREDNISONE TAB [Concomitant]
     Dates: start: 20021205
  4. NAPROXEN [Concomitant]
     Dates: start: 20011204
  5. FOLIC ACID [Concomitant]
     Dates: start: 20011204

REACTIONS (1)
  - PULMONARY TUBERCULOSIS [None]
